FAERS Safety Report 5884053-X (Version None)
Quarter: 2008Q3

REPORT INFORMATION
  Report Type: 
  Country: None (occurrence: None)
  Receive Date: 20080911
  Receipt Date: 20080828
  Transmission Date: 20090109
  Serious: Yes (Death)
  Sender: FDA-Public Use
  Company Number: 2008S1015624

PATIENT
  Age: 40 Year
  Sex: Male

DRUGS (2)
  1. LOVAN (FLUOXETINE HYDROCHLORIDE) 20 MG;UNKNOWN;DAILY [Suspect]
     Indication: DEPRESSION
     Dosage: 20 MG; DAILY
  2. CITALOPRAM HYDROBROMIDE [Suspect]
     Indication: DEPRESSION

REACTIONS (1)
  - COMPLETED SUICIDE [None]
